FAERS Safety Report 5091550-6 (Version None)
Quarter: 2006Q3

REPORT INFORMATION
  Report Type: 
  Country: None (occurrence: None)
  Receive Date: 20060829
  Receipt Date: 20060817
  Transmission Date: 20061208
  Serious: Yes (Other)
  Sender: FDA-Public Use
  Company Number: GB-ROCHE-460840

PATIENT
  Age: 37 Year
  Sex: Female
  Weight: 146 kg

DRUGS (1)
  1. XENICAL [Suspect]
     Indication: OBESITY
     Route: 048
     Dates: start: 20060523, end: 20060816

REACTIONS (1)
  - PANCREATITIS [None]
